FAERS Safety Report 5551642-1 (Version None)
Quarter: 2007Q4

REPORT INFORMATION
  Report Type: 
  Country: None (occurrence: None)
  Receive Date: 20071212
  Receipt Date: 20071130
  Transmission Date: 20080405
  Serious: Yes (Hospitalization, Other)
  Sender: FDA-Public Use
  Company Number: US-ELI_LILLY_AND_COMPANY-US200709005749

PATIENT
  Sex: Female

DRUGS (5)
  1. FORTEO [Suspect]
     Indication: OSTEOPOROSIS
     Dosage: 20 UG, DAILY (1/D)
     Dates: start: 20060802, end: 20070301
  2. ASPIRIN [Concomitant]
     Dosage: 81 MG, UNK
  3. TEGRETOL [Concomitant]
  4. LANOXIN [Concomitant]
     Dosage: 1.25 MG, DAILY (1/D)
     Route: 048
  5. FISH OIL [Concomitant]
     Dosage: 2 UNK, DAILY (1/D)

REACTIONS (4)
  - BACK PAIN [None]
  - DEPRESSION [None]
  - GASTROINTESTINAL HAEMORRHAGE [None]
  - HELICOBACTER GASTRITIS [None]
